FAERS Safety Report 6271985-6 (Version None)
Quarter: 2009Q3

REPORT INFORMATION
  Report Type: 
  Country: None (occurrence: None)
  Receive Date: 20090713
  Receipt Date: 20090413
  Transmission Date: 20100115
  Serious: No
  Sender: FDA-Public Use
  Company Number: 2009BM000093

PATIENT
  Age: 40 Year
  Sex: Female
  Weight: 67.1324 kg

DRUGS (4)
  1. KUVAN [Suspect]
     Indication: PHENYLKETONURIA
     Dosage: 1500 MG; QD; PO
     Route: 048
     Dates: start: 20090101
  2. EFFEXOR [Concomitant]
  3. KLONOPIN [Concomitant]
  4. EXCEDRIN (MIGRAINE) [Concomitant]

REACTIONS (11)
  - ABDOMINAL PAIN UPPER [None]
  - ABNORMAL LOSS OF WEIGHT [None]
  - DIZZINESS [None]
  - HEADACHE [None]
  - LOCALISED INFECTION [None]
  - PRURITUS [None]
  - RASH ERYTHEMATOUS [None]
  - RASH GENERALISED [None]
  - RASH MACULAR [None]
  - RASH PRURITIC [None]
  - WEIGHT DECREASED [None]
